FAERS Safety Report 5222473-7 (Version None)
Quarter: 2007Q1

REPORT INFORMATION
  Report Type: 
  Country: None (occurrence: None)
  Receive Date: 20070129
  Receipt Date: 20060306
  Transmission Date: 20070707
  Serious: No
  Sender: FDA-Public Use
  Company Number: US-BRISTOL-MYERS SQUIBB COMPANY-13271911

PATIENT
  Age: 77 Year
  Sex: Male

DRUGS (6)
  1. CARDIOLITE [Suspect]
     Indication: MYOCARDIAL ISCHAEMIA
     Route: 042
     Dates: start: 20050131, end: 20050131
  2. CARDIZEM [Concomitant]
     Route: 041
     Dates: start: 20060131
  3. LOPRESSOR [Concomitant]
     Route: 048
  4. LOVENOX [Concomitant]
     Route: 058
  5. VERSED [Concomitant]
     Route: 042
  6. DEMEROL [Concomitant]
     Route: 042

REACTIONS (2)
  - TACHYCARDIA [None]
  - URTICARIA [None]
